FAERS Safety Report 9686583 (Version 1)
Quarter: 2013Q4

REPORT INFORMATION
  Report Type: Spontaneous
  Country: US (occurrence: US)
  Receive Date: 20131113
  Receipt Date: 20131113
  Transmission Date: 20140711
  Serious: Yes (Other)
  Sender: FDA-Public Use
  Company Number: US-GLAXOSMITHKLINE-A1048867A

PATIENT
  Age: 52 Year
  Sex: Female

DRUGS (20)
  1. ADVAIR [Suspect]
     Indication: CHRONIC OBSTRUCTIVE PULMONARY DISEASE
     Dosage: 1PUFF TWICE PER DAY
     Route: 055
  2. VENTOLIN [Suspect]
     Indication: DYSPNOEA
     Dosage: 2PUFF FOUR TIMES PER DAY
     Route: 055
  3. ALBUTEROL NEBULIZER [Concomitant]
  4. LAMOTRIGINE [Concomitant]
  5. TOPIRAMATE [Concomitant]
  6. NAPROXEN [Concomitant]
  7. PHENOBARBITAL [Concomitant]
  8. NUVIGIL [Concomitant]
  9. LEVOTHYROXINE [Concomitant]
  10. ALENDRONATE [Concomitant]
  11. AMITIZA [Concomitant]
  12. VITAMIN D [Concomitant]
  13. FUROSEMIDE [Concomitant]
  14. KLOR-CON [Concomitant]
  15. DICYCLOMINE [Concomitant]
  16. GABAPENTIN [Concomitant]
  17. PRAVASTATIN [Concomitant]
  18. HYOSCYAMINE [Concomitant]
  19. ALPHAGAN [Concomitant]
  20. ERYTHROMYCIN [Concomitant]

REACTIONS (15)
  - Paralysis [Not Recovered/Not Resolved]
  - Knee arthroplasty [Not Recovered/Not Resolved]
  - Fracture nonunion [Not Recovered/Not Resolved]
  - Muscular weakness [Not Recovered/Not Resolved]
  - Sensory loss [Not Recovered/Not Resolved]
  - Cough [Not Recovered/Not Resolved]
  - Hypoaesthesia [Not Recovered/Not Resolved]
  - Dyspnoea [Not Recovered/Not Resolved]
  - Asthma [Not Recovered/Not Resolved]
  - Bronchitis [Not Recovered/Not Resolved]
  - Muscular weakness [Not Recovered/Not Resolved]
  - Dyspnoea [Not Recovered/Not Resolved]
  - Lower limb fracture [Not Recovered/Not Resolved]
  - Contusion [Not Recovered/Not Resolved]
  - Fall [Not Recovered/Not Resolved]
